FAERS Safety Report 9256937 (Version 1)
Quarter: 2013Q2

REPORT INFORMATION
  Report Type: Spontaneous
  Country: US (occurrence: None)
  Receive Date: 20130423
  Receipt Date: 20130423
  Transmission Date: 20140414
  Serious: Yes (Hospitalization, Other)
  Sender: FDA-Public Use
  Company Number: JPI-P-031279

PATIENT
  Age: 42 Year
  Sex: Female
  Weight: 81.65 kg

DRUGS (4)
  1. XYREM [Suspect]
     Indication: CATAPLEXY
     Route: 048
     Dates: start: 201009
  2. XYREM [Suspect]
     Indication: SOMNOLENCE
     Route: 048
     Dates: start: 201009
  3. ARMODAFINIL PSYCHOSTIMULANTS AND NOOTROPICS [Concomitant]
  4. CITALOPRAM HYDROBROMIDE [Concomitant]

REACTIONS (4)
  - Post-traumatic stress disorder [None]
  - Depression [None]
  - Fear [None]
  - Adverse event [None]
